FAERS Safety Report 7704459 (Version 3)
Quarter: 2012Q4

REPORT INFORMATION
  Report Type: Report from Study
  Country: JP (occurrence: JP)
  Receive Date: 20101213
  Receipt Date: 20121115
  Transmission Date: 20130627
  Serious: Yes (Death, Life-Threatening)
  Sender: FDA-Public Use
  Company Number: JP-GENZYME-THYM-1002153

PATIENT
  Age: 7 Year
  Sex: Male
  Weight: 23 kg

DRUGS (32)
  1. FENTANYL CITRATE [Concomitant]
     Indication: PAIN
     Dosage: UNK
     Route: 065
     Dates: start: 20100114, end: 20100427
  2. DOPAMINE HYDROCHLORIDE [Concomitant]
     Indication: GRAFT VERSUS HOST DISEASE
     Dosage: UNK
     Route: 065
     Dates: start: 20100127, end: 20100217
  3. DOPAMINE HYDROCHLORIDE [Concomitant]
     Indication: BLOOD PRESSURE DECREASED
  4. METHYLPREDNISOLONE SODIUM SUCCINATE [Concomitant]
     Indication: GRAFT VERSUS HOST DISEASE
     Dosage: UNK
     Route: 065
     Dates: start: 20100208, end: 20100302
  5. METHYLPREDNISOLONE SODIUM SUCCINATE [Concomitant]
     Dosage: UNK
     Dates: start: 20100313, end: 20100427
  6. OCTREOTIDE ACETATE [Concomitant]
     Indication: GRAFT VERSUS HOST DISEASE
     Dosage: UNK
     Route: 065
     Dates: start: 20100215, end: 20100215
  7. OCTREOTIDE ACETATE [Concomitant]
     Dosage: UNK
     Dates: start: 20100306, end: 20100402
  8. LANSOPRAZOLE [Concomitant]
     Indication: PROPHYLAXIS AGAINST GASTROINTESTINAL ULCER
     Dosage: UNK
     Route: 065
     Dates: start: 20100202, end: 20100304
  9. HUMAN SERUM ALBUMIN [Concomitant]
     Indication: HYPERPROTEINAEMIA
     Dosage: UNK
     Route: 065
     Dates: start: 20100211, end: 20100328
  10. ANTITHROMBIN III HUMAN [Concomitant]
     Indication: ANTITHROMBIN III DECREASED
     Dosage: UNK
     Route: 065
     Dates: start: 20100212, end: 20100426
  11. VANCOMYCIN HYDROCHLORIDE [Concomitant]
     Indication: ANTIBIOTIC PROPHYLAXIS
     Dosage: UNK
     Route: 065
     Dates: start: 20100226, end: 20100424
  12. DEXAMETHASONE [Concomitant]
     Indication: NON-HODGKIN^S LYMPHOMA
     Dosage: UNK
     Route: 065
     Dates: start: 20100310, end: 20100312
  13. DEXAMETHASONE [Concomitant]
     Indication: GRAFT VERSUS HOST DISEASE
  14. BETAMETHASONE SODIUM PHOSPHATE [Concomitant]
     Indication: GRAFT VERSUS HOST DISEASE
     Dosage: UNK
     Route: 065
     Dates: start: 20100311, end: 20100316
  15. PREDNISOLONE SODIUM PHOSPHATE [Concomitant]
     Indication: GRAFT VERSUS HOST DISEASE
     Dosage: UNK
     Route: 065
     Dates: start: 20100317, end: 20100404
  16. POLYETHYLENE GLYCOL TREATED HUMAN NORMAL IMMUNOGLOBULIN [Concomitant]
     Indication: PRODUCT USED FOR UNKNOWN INDICATION
     Dosage: UNK
     Route: 065
     Dates: start: 20100104, end: 20100419
  17. METHOTREXATE [Concomitant]
     Indication: GRAFT VERSUS HOST DISEASE
     Dosage: UNK
     Route: 065
     Dates: start: 20100315, end: 20100425
  18. BROMHEXINE HYDROCHLORIDE [Concomitant]
     Indication: PULMONARY OEDEMA
     Dosage: UNK
     Route: 065
     Dates: start: 20100410, end: 20100424
  19. BROMHEXINE HYDROCHLORIDE [Concomitant]
     Indication: NON-HODGKIN^S LYMPHOMA
  20. MICAFUNGIN SODIUM [Concomitant]
     Indication: ANTIFUNGAL PROPHYLAXIS
     Dosage: UNK
     Route: 065
     Dates: start: 20100228, end: 20100423
  21. FREEZE-DRIED ION-EXCHANGE RESIN [Concomitant]
     Indication: PRODUCT USED FOR UNKNOWN INDICATION
     Dosage: UNK
     Route: 065
     Dates: start: 20100312, end: 20100314
  22. THYMOGLOBULINE [Suspect]
     Indication: GRAFT VERSUS HOST DISEASE
     Dosage: 25 mg, qd
     Route: 042
     Dates: start: 20100211, end: 20100211
  23. THYMOGLOBULINE [Suspect]
     Dosage: 25 mg, qd
     Route: 042
     Dates: start: 20100213, end: 20100213
  24. THYMOGLOBULINE [Suspect]
     Dosage: 25 mg, qd
     Route: 042
     Dates: start: 20100215, end: 20100215
  25. TACROLIMUS [Suspect]
     Indication: PROPHYLAXIS AGAINST GRAFT VERSUS HOST DISEASE
     Dosage: UNK
     Route: 065
     Dates: start: 20100111, end: 20100306
  26. TACROLIMUS [Suspect]
     Indication: GRAFT VERSUS HOST DISEASE
  27. MEROPENEM TRIHYDRATE [Concomitant]
     Indication: FEBRILE NEUTROPENIA
     Dosage: UNK
     Route: 065
     Dates: start: 20100116, end: 20100423
  28. AMPHOTERICIN [Concomitant]
     Indication: FEBRILE NEUTROPENIA
     Dosage: UNK
     Route: 065
     Dates: start: 20100121, end: 20100227
  29. ACICLOVIR [Concomitant]
     Indication: ANTIVIRAL PROPHYLAXIS
     Dosage: UNK
     Route: 065
     Dates: start: 20100105, end: 20100306
  30. ACICLOVIR [Concomitant]
     Dosage: UNK
     Dates: start: 20100403, end: 20100427
  31. TACROLIMUS [Concomitant]
     Indication: PROPHYLAXIS AGAINST GRAFT VERSUS HOST DISEASE
     Dosage: UNK
     Route: 065
     Dates: start: 20100111, end: 20100306
  32. TACROLIMUS [Concomitant]
     Indication: GRAFT VERSUS HOST DISEASE

REACTIONS (3)
  - Precursor T-lymphoblastic lymphoma/leukaemia recurrent [Fatal]
  - Posterior reversible encephalopathy syndrome [Recovered/Resolved]
  - Febrile neutropenia [Fatal]
